FAERS Safety Report 22857696 (Version 4)
Quarter: 2023Q4

REPORT INFORMATION
  Report Type: Report from Study
  Country: US (occurrence: US)
  Receive Date: 20230823
  Receipt Date: 20231017
  Transmission Date: 20240110
  Serious: Yes (Hospitalization, Other)
  Sender: FDA-Public Use
  Company Number: US-GILEAD-2023-0640862

PATIENT
  Age: 73 Year
  Sex: Male
  Weight: 75 kg

DRUGS (12)
  1. BREXUCABTAGENE AUTOLEUCEL [Suspect]
     Active Substance: BREXUCABTAGENE AUTOLEUCEL
     Indication: Mantle cell lymphoma
     Dosage: 200 X 10^6 CELLS
     Route: 042
     Dates: start: 20230807, end: 20230807
  2. TRAMADOL [Concomitant]
     Active Substance: TRAMADOL\TRAMADOL HYDROCHLORIDE
     Dosage: 50 MG
     Dates: start: 20230811
  3. ALTEPLASE [Concomitant]
     Active Substance: ALTEPLASE
     Dosage: 2 MG
     Dates: start: 20230802
  4. HEPARIN LOCK FLUSH [Concomitant]
     Active Substance: HEPARIN SODIUM
     Dosage: 500 UNITS
     Dates: start: 20230803
  5. VALTREX [Concomitant]
     Active Substance: VALACYCLOVIR HYDROCHLORIDE
     Dosage: 500 MG
     Dates: start: 20230814
  6. KEPPRA [Concomitant]
     Active Substance: LEVETIRACETAM
     Dosage: 500 MG
     Dates: start: 20230817
  7. ZYLOPRIM [Concomitant]
     Active Substance: ALLOPURINOL
     Dosage: 100 MG
     Dates: start: 20230815
  8. ZOFRAN [Concomitant]
     Active Substance: ONDANSETRON HYDROCHLORIDE
     Dosage: UNK
     Dates: start: 20230807
  9. PROCHLORPERAZINE EDISYLATE [Concomitant]
     Active Substance: PROCHLORPERAZINE EDISYLATE
     Dosage: 10 MG
     Dates: start: 20230807
  10. EPINEPHRINE [Concomitant]
     Active Substance: EPINEPHRINE
     Dosage: 1 MG/ML INJECTION 0.3 MG
     Dates: start: 20230807
  11. PROTONIX [Concomitant]
     Active Substance: PANTOPRAZOLE SODIUM
     Dosage: 40 MG
     Dates: start: 20230807
  12. MIDODRINE [Concomitant]
     Active Substance: MIDODRINE
     Indication: Hypotension

REACTIONS (3)
  - Cytokine release syndrome [Recovered/Resolved]
  - Neurotoxicity [Recovered/Resolved]
  - Infection [Unknown]

NARRATIVE: CASE EVENT DATE: 20230818
